FAERS Safety Report 15828045 (Version 1)
Quarter: 2019Q1

REPORT INFORMATION
  Report Type: Spontaneous
  Country: US (occurrence: US)
  Receive Date: 20190115
  Receipt Date: 20190115
  Transmission Date: 20190417
  Serious: No
  Sender: FDA-Public Use
  Company Number: US-ALLERGAN-1822639US

PATIENT
  Sex: Male

DRUGS (3)
  1. LOTEMAX [Concomitant]
     Active Substance: LOTEPREDNOL ETABONATE
     Indication: OCULAR HYPERAEMIA
     Dosage: 2 GTT, QID
     Route: 047
  2. RESTASIS [Suspect]
     Active Substance: CYCLOSPORINE
     Indication: OCULAR HYPERAEMIA
     Dosage: 2 GTT, BID
     Route: 047
  3. OLOPATADINE HYDROCHLORIDE. [Concomitant]
     Active Substance: OLOPATADINE HYDROCHLORIDE
     Indication: OCULAR HYPERAEMIA
     Dosage: UNK
     Route: 047

REACTIONS (1)
  - Off label use [Unknown]
